FAERS Safety Report 19460616 (Version 5)
Quarter: 2023Q2

REPORT INFORMATION
  Report Type: Report from Study
  Country: DE (occurrence: DE)
  Receive Date: 20210625
  Receipt Date: 20230626
  Transmission Date: 20230721
  Serious: Yes (Hospitalization)
  Sender: FDA-Public Use
  Company Number: DE-ABBVIE-21K-062-3964077-00

PATIENT
  Age: 55 Year
  Sex: Male
  Weight: 114 kg

DRUGS (11)
  1. SKYRIZI [Suspect]
     Active Substance: RISANKIZUMAB-RZAA
     Indication: Psoriasis
     Route: 058
     Dates: start: 20201215
  2. LisiLich [Concomitant]
     Indication: Product used for unknown indication
     Dosage: 10/12.5 MG
     Route: 048
     Dates: start: 2011
  3. DAPAGLIFLOZIN [Concomitant]
     Active Substance: DAPAGLIFLOZIN
     Indication: Product used for unknown indication
     Route: 048
     Dates: start: 2018
  4. JANUMET [Concomitant]
     Active Substance: METFORMIN HYDROCHLORIDE\SITAGLIPTIN PHOSPHATE
     Indication: Product used for unknown indication
     Dosage: 50/1000 MG
     Route: 048
     Dates: start: 2011
  5. ENOXAPARIN SODIUM [Concomitant]
     Active Substance: ENOXAPARIN SODIUM
     Indication: Product used for unknown indication
     Dosage: FOR 7 MORE DAYS
     Route: 058
  6. Novalgin [Concomitant]
     Indication: Abdominal pain lower
     Route: 042
  7. Novalgin [Concomitant]
     Indication: Abdominal pain lower
     Route: 042
  8. CEFAZOLIN [Concomitant]
     Active Substance: CEFAZOLIN
     Indication: Appendicitis
     Route: 042
  9. CEFAZOLIN [Concomitant]
     Active Substance: CEFAZOLIN
     Indication: Appendicitis
     Route: 042
  10. METRONIDAZOLE [Concomitant]
     Active Substance: METRONIDAZOLE
     Indication: Appendicitis
     Route: 042
  11. METRONIDAZOLE [Concomitant]
     Active Substance: METRONIDAZOLE
     Indication: Appendicitis
     Route: 042

REACTIONS (11)
  - Appendicitis [Recovered/Resolved]
  - Appendicitis [Recovered/Resolved]
  - Nausea [Unknown]
  - Vomiting [Unknown]
  - Hepatic steatosis [Unknown]
  - Gastrointestinal wall thickening [Unknown]
  - Appendix disorder [Unknown]
  - Palpitations [Unknown]
  - Abdominal pain lower [Recovered/Resolved]
  - Unevaluable event [Not Recovered/Not Resolved]
  - Procedural pain [Unknown]

NARRATIVE: CASE EVENT DATE: 20210331
